FAERS Safety Report 23495158 (Version 1)
Quarter: 2024Q1

REPORT INFORMATION
  Report Type: Spontaneous
  Country: SE (occurrence: SE)
  Receive Date: 20240207
  Receipt Date: 20240207
  Transmission Date: 20240410
  Serious: Yes (Death, Hospitalization, Disabling, Other)
  Sender: FDA-Public Use
  Company Number: None

PATIENT
  Age: 76 Year
  Sex: Female
  Weight: 40 kg

DRUGS (7)
  1. KEYTRUDA [Suspect]
     Active Substance: PEMBROLIZUMAB
     Indication: Colon cancer metastatic
     Dosage: INFUSION EVERY THREE WEEKS. DOSE: FIRST DOSE
     Route: 042
     Dates: start: 20221001, end: 20231101
  2. CANDESARTAN [Concomitant]
     Active Substance: CANDESARTAN
     Dosage: 1 DAY
     Route: 048
     Dates: start: 20150101
  3. ACETAMINOPHEN [Concomitant]
     Active Substance: ACETAMINOPHEN
     Dosage: 1+1+1
     Route: 048
     Dates: start: 20220201, end: 20221101
  4. TARGINIQ ER [Concomitant]
     Active Substance: NALOXONE HYDROCHLORIDE\OXYCODONE HYDROCHLORIDE
     Dosage: 1+1
     Route: 048
     Dates: start: 20220201, end: 20221101
  5. FENTANYL [Concomitant]
     Active Substance: FENTANYL\FENTANYL CITRATE
     Dosage: 1/WEEK
     Route: 061
     Dates: start: 20220201, end: 20221101
  6. PREGABALIN [Concomitant]
     Active Substance: PREGABALIN
     Dosage: 2+2+2
     Route: 048
     Dates: start: 20220201, end: 20221101
  7. ASPIRIN [Concomitant]
     Active Substance: ASPIRIN
     Dosage: 1 DAY
     Route: 048
     Dates: start: 20150101

REACTIONS (1)
  - Amyotrophic lateral sclerosis [Fatal]
